FAERS Safety Report 8136321-9 (Version None)
Quarter: 2012Q1

REPORT INFORMATION
  Report Type: 
  Country: None (occurrence: None)
  Receive Date: 20120214
  Receipt Date: 20120213
  Transmission Date: 20120608
  Serious: No
  Sender: FDA-Public Use
  Company Number: US-BAYER-2012-014634

PATIENT
  Age: 32 Year
  Sex: Female
  Weight: 95 kg

DRUGS (6)
  1. ACETAMINOPHEN AND HYDROCODONE BITARTRATE [Concomitant]
     Dosage: 2.5-500
  2. BETASERON [Suspect]
     Indication: PRODUCT USED FOR UNKNOWN INDICATION
     Dosage: 0.3 MG, QOD
     Route: 058
  3. IBUPROFEN [Concomitant]
  4. SINGULAIR [Concomitant]
     Dosage: 10 MG, UNK
  5. PRILOSEC [Concomitant]
     Dosage: 40 MG, UNK
  6. CYMBALTA [Concomitant]
     Dosage: 20 MG, UNK

REACTIONS (1)
  - PAIN [None]
